FAERS Safety Report 11953851 (Version 1)
Quarter: 2016Q1

REPORT INFORMATION
  Report Type: Spontaneous
  Country: CA (occurrence: CA)
  Receive Date: 20160125
  Receipt Date: 20160125
  Transmission Date: 20160526
  Serious: Yes (Other)
  Sender: FDA-Public Use
  Company Number: CA-009507513-1601CAN007691

PATIENT
  Age: 77 Year
  Sex: Female
  Weight: 64.85 kg

DRUGS (17)
  1. ATIVAN [Concomitant]
     Active Substance: LORAZEPAM
  2. METROGEL (METRONIDAZOLE) [Concomitant]
  3. GRAVOL (DIMENHYDRINATE) [Concomitant]
  4. LOSEC (OMEPRAZOLE) [Concomitant]
  5. TYLENOL WITH CODEINE #4 [Concomitant]
  6. LOZIDE [Concomitant]
     Active Substance: INDAPAMIDE
  7. CODEINE [Concomitant]
     Active Substance: CODEINE
  8. DOCUSATE CALCIUM. [Concomitant]
     Active Substance: DOCUSATE CALCIUM
  9. FINACEA [Concomitant]
     Active Substance: AZELAIC ACID
  10. DILTIAZEM [Concomitant]
     Active Substance: DILTIAZEM
  11. FUCIDIN (FUSIDATE SODIUM) [Concomitant]
  12. TYLENOL WITH CODEINE [Concomitant]
     Active Substance: ACETAMINOPHEN\CODEINE PHOSPHATE
  13. CYANOCOBALAMIN. [Concomitant]
     Active Substance: CYANOCOBALAMIN
  14. INVANZ [Suspect]
     Active Substance: ERTAPENEM SODIUM
     Indication: PSEUDOMONAS INFECTION
     Dosage: 1 G, UNK
     Route: 042
  15. DERMOTIC [Concomitant]
     Active Substance: FLUOCINOLONE ACETONIDE
  16. SULCRATE [Concomitant]
     Active Substance: SUCRALFATE
  17. BETADERM (BETAMETHASONE VALERATE) [Concomitant]

REACTIONS (15)
  - Confusional state [Recovered/Resolved]
  - Continuous positive airway pressure [Recovered/Resolved]
  - Generalised anxiety disorder [Recovered/Resolved]
  - Sleep apnoea syndrome [Recovered/Resolved]
  - Varicella immunisation [Recovered/Resolved]
  - Intervertebral disc degeneration [Recovered/Resolved]
  - Disorientation [Recovered/Resolved]
  - Headache [Recovered/Resolved]
  - Hepatitis B immunisation [Recovered/Resolved]
  - Pain [Recovered/Resolved]
  - Colonoscopy [Recovered/Resolved]
  - Agitation [Recovered/Resolved]
  - Hepatitis A immunisation [Recovered/Resolved]
  - Hypertension [Recovered/Resolved]
  - Radiculopathy [Recovered/Resolved]
